FAERS Safety Report 10203615 (Version 1)
Quarter: 2014Q2

REPORT INFORMATION
  Report Type: Spontaneous
  Country: DE (occurrence: DE)
  Receive Date: 20140529
  Receipt Date: 20140529
  Transmission Date: 20141212
  Serious: Yes (Other)
  Sender: FDA-Public Use
  Company Number: DE-EISAI INC-E2090-03289-SPO-DE

PATIENT
  Age: 13 Year
  Sex: Male
  Weight: 27 kg

DRUGS (1)
  1. ZONEGRAN [Suspect]
     Indication: EPILEPSY

REACTIONS (2)
  - Nephrolithiasis [Not Recovered/Not Resolved]
  - Off label use [Not Recovered/Not Resolved]
